FAERS Safety Report 8519440-4 (Version None)
Quarter: 2012Q3

REPORT INFORMATION
  Report Type: 
  Country: None (occurrence: None)
  Receive Date: 20120718
  Receipt Date: 20120712
  Transmission Date: 20120928
  Serious: Yes (Hospitalization)
  Sender: FDA-Public Use
  Company Number: JP-PFIZER INC-2012080936

PATIENT
  Age: 25 Year
  Sex: Female

DRUGS (2)
  1. ZITHROMAX [Suspect]
     Indication: MYCOPLASMA INFECTION
     Dosage: 500 MG, 1X/DAY
     Route: 048
     Dates: start: 20120327, end: 20120329
  2. MEDICON [Concomitant]
     Dosage: UNK

REACTIONS (3)
  - CARDIAC FAILURE [None]
  - CARDIOMEGALY [None]
  - PLEURAL EFFUSION [None]
